FAERS Safety Report 6497289-4 (Version None)
Quarter: 2009Q4

REPORT INFORMATION
  Report Type: 
  Country: None (occurrence: None)
  Receive Date: 20091215
  Receipt Date: 20090814
  Transmission Date: 20100525
  Serious: No
  Sender: FDA-Public Use
  Company Number: A0802291A

PATIENT
  Age: 77 Year
  Sex: Male

DRUGS (7)
  1. AVODART [Suspect]
     Indication: BENIGN PROSTATIC HYPERPLASIA
     Dosage: .5MG PER DAY
     Route: 048
     Dates: start: 20090801
  2. LOPRESSOR [Concomitant]
  3. REGULAR INSULIN [Concomitant]
  4. NPH INSULIN [Concomitant]
  5. KLONOPIN [Concomitant]
  6. DARVOCET [Concomitant]
  7. PERCOCET [Concomitant]

REACTIONS (2)
  - BURNING SENSATION [None]
  - ORAL PAIN [None]
